FAERS Safety Report 8548656-6 (Version None)
Quarter: 2012Q2

REPORT INFORMATION
  Report Type: 
  Country: None (occurrence: None)
  Receive Date: 20120416
  Receipt Date: 20110414
  Transmission Date: 20120825
  Serious: Yes (Other)
  Sender: FDA-Public Use
  Company Number: PHHY2011US28353

PATIENT
  Age: 67 Year
  Sex: Female

DRUGS (3)
  1. VITAMINS (NO INGREDIENTS/SUBSTANCES) [Concomitant]
  2. DIOVAN [Suspect]
     Dosage: 320 MG, QD
  3. CLONIDINE [Concomitant]

REACTIONS (3)
  - MICTURITION URGENCY [None]
  - BLOOD PRESSURE INCREASED [None]
  - DRUG INEFFECTIVE [None]
